FAERS Safety Report 18738956 (Version 2)
Quarter: 2021Q1

REPORT INFORMATION
  Report Type: Spontaneous
  Country: IT (occurrence: IT)
  Receive Date: 20210114
  Receipt Date: 20210225
  Transmission Date: 20210419
  Serious: Yes (Other)
  Sender: FDA-Public Use
  Company Number: IT-TEVA-2021-IT-1869618

PATIENT
  Age: 41 Year
  Sex: Female

DRUGS (6)
  1. LEUCOVORIN. [Suspect]
     Active Substance: LEUCOVORIN
     Indication: CHEMOTHERAPY SIDE EFFECT PROPHYLAXIS
     Dosage: PART OF FOLFIRINOX REGIMEN
     Route: 065
     Dates: start: 201906, end: 202001
  2. FLUOROURACIL. [Suspect]
     Active Substance: FLUOROURACIL
     Indication: CYSTADENOCARCINOMA PANCREAS
     Dosage: PART OF FOLFIRINOX REGIMEN; BOLUS
     Route: 050
     Dates: start: 201906
  3. OXALIPLATIN. [Suspect]
     Active Substance: OXALIPLATIN
     Indication: CYSTADENOCARCINOMA PANCREAS
     Dosage: PART OF FOLFIRINOX REGIMEN
     Route: 065
     Dates: start: 201906, end: 202001
  4. FLUOROURACIL. [Suspect]
     Active Substance: FLUOROURACIL
     Indication: CYSTADENOCARCINOMA PANCREAS
     Dosage: AS A 46?HOUR CONTINUOUS INFUSION
     Route: 050
     Dates: end: 202001
  5. IRINOTECAN [Suspect]
     Active Substance: IRINOTECAN
     Indication: CYSTADENOCARCINOMA PANCREAS
     Dosage: PART OF FOLFIRINOX REGIMEN
     Route: 065
     Dates: start: 201906, end: 202001
  6. OLAPARIB. [Suspect]
     Active Substance: OLAPARIB
     Indication: CYSTADENOCARCINOMA PANCREAS
     Dosage: 600 MILLIGRAM DAILY;
     Route: 065
     Dates: start: 202001

REACTIONS (4)
  - Febrile neutropenia [Unknown]
  - Fatigue [Unknown]
  - Anaemia [Unknown]
  - Vomiting [Unknown]
